FAERS Safety Report 21458398 (Version 1)
Quarter: 2022Q4

REPORT INFORMATION
  Report Type: Spontaneous
  Country: IT (occurrence: IT)
  Receive Date: 20221014
  Receipt Date: 20221014
  Transmission Date: 20230113
  Serious: Yes (Other)
  Sender: FDA-Public Use
  Company Number: None

PATIENT
  Age: 60 Year
  Sex: Female
  Weight: 64 kg

DRUGS (7)
  1. VFEND [Suspect]
     Active Substance: VORICONAZOLE
     Indication: Aspergillus infection
     Dosage: 200 MG
     Route: 042
     Dates: start: 20220925, end: 20220925
  2. AVIBACTAM SODIUM\CEFTAZIDIME [Concomitant]
     Active Substance: AVIBACTAM SODIUM\CEFTAZIDIME
     Indication: Klebsiella sepsis
     Dosage: 2.5 MG, 3X/DAY
     Route: 042
     Dates: start: 20220925
  3. TYGACIL [Concomitant]
     Active Substance: TIGECYCLINE
     Indication: Klebsiella sepsis
     Dosage: 50 MG, 2X/DAY
     Route: 042
     Dates: start: 20220925
  4. ACYCLOVIR [Concomitant]
     Active Substance: ACYCLOVIR
     Indication: Prophylaxis
  5. CYCLOSPORINE [Concomitant]
     Active Substance: CYCLOSPORINE
     Indication: Bone marrow failure
  6. ELTROMBOPAG OLAMINE [Concomitant]
     Active Substance: ELTROMBOPAG OLAMINE
     Indication: Bone marrow failure
     Dosage: 75 MG, 2X/DAY
     Route: 048
     Dates: start: 20220925
  7. METHYLPREDNISOLONE [Concomitant]
     Active Substance: METHYLPREDNISOLONE
     Indication: Bone marrow failure
     Dosage: 100 MG
     Route: 042
     Dates: start: 20220924

REACTIONS (1)
  - Blindness transient [Recovered/Resolved with Sequelae]

NARRATIVE: CASE EVENT DATE: 20220926
